FAERS Safety Report 18068545 (Version 1)
Quarter: 2020Q3

REPORT INFORMATION
  Report Type: Spontaneous
  Country: US (occurrence: US)
  Receive Date: 20200724
  Receipt Date: 20200724
  Transmission Date: 20201103
  Serious: Yes (Other)
  Sender: FDA-Public Use
  Company Number: US-GLAXOSMITHKLINE-US2020137388

PATIENT

DRUGS (1)
  1. SENSODYNE [Suspect]
     Active Substance: POTASSIUM NITRATE\SODIUM FLUORIDE
     Indication: DENTAL CARE
     Dosage: UNK

REACTIONS (7)
  - Oropharyngeal blistering [Unknown]
  - Tongue blistering [Unknown]
  - Oral pain [Unknown]
  - Gingival blister [Unknown]
  - Oropharyngeal pain [Unknown]
  - Gingival pain [Unknown]
  - Glossodynia [Unknown]
